FAERS Safety Report 11369017 (Version 1)
Quarter: 2015Q3

REPORT INFORMATION
  Report Type: Spontaneous
  Country: US (occurrence: None)
  Receive Date: 20150811
  Receipt Date: 20150811
  Transmission Date: 20151125
  Serious: Yes (Hospitalization)
  Sender: FDA-Public Use
  Company Number: None

PATIENT
  Age: 52 Year
  Sex: Male
  Weight: 119 kg

DRUGS (1)
  1. METHOTREXATE FOR INJECTION HOSPIRA OR TEVA [Suspect]
     Active Substance: METHOTREXATE
     Indication: CENTRAL NERVOUS SYSTEM LYMPHOMA
     Route: 042
     Dates: start: 20150713, end: 20150714

REACTIONS (2)
  - Blood creatinine increased [None]
  - Chemotherapeutic drug level increased [None]

NARRATIVE: CASE EVENT DATE: 20150715
